FAERS Safety Report 4897652-9 (Version None)
Quarter: 2006Q1

REPORT INFORMATION
  Report Type: 
  Country: None (occurrence: None)
  Receive Date: 20060130
  Receipt Date: 20060130
  Transmission Date: 20060701
  Serious: Yes (Other)
  Sender: FDA-Public Use
  Company Number: None

PATIENT
  Age: 53 Year
  Sex: Male
  Weight: 74.4 kg

DRUGS (6)
  1. SIMVASTATIN [Suspect]
  2. TRAMSDOL HCL [Concomitant]
  3. SILDENAFIL CITRATE [Concomitant]
  4. GABAPENTIN [Concomitant]
  5. OMEPRAZOLE [Concomitant]
  6. DIAZEPAM [Concomitant]

REACTIONS (1)
  - MYALGIA [None]
